FAERS Safety Report 16737662 (Version 2)
Quarter: 2019Q3

REPORT INFORMATION
  Report Type: Spontaneous
  Country: DE (occurrence: DE)
  Receive Date: 20190823
  Receipt Date: 20190905
  Transmission Date: 20191005
  Serious: Yes (Hospitalization, Disabling)
  Sender: FDA-Public Use
  Company Number: DE-BAUSCH-BL-2019-024210

PATIENT
  Age: 47 Year
  Sex: Male
  Weight: 80 kg

DRUGS (2)
  1. KYNTHEUM [Suspect]
     Active Substance: BRODALUMAB
     Indication: PSORIASIS
     Dosage: ACCORDING TO SCHEME OR WEEKLY, THE SECOND DOSE ON 26/JUL/2019, THE THIRD DOSE ON 02/AUG/2019
     Route: 058
     Dates: start: 20190719, end: 20190802
  2. BOOSTRIX POLIO [Concomitant]
     Active Substance: DIPHTHERIA AND TETANUS TOXOIDS AND ACELLULAR PERTUSSIS ADSORBED AND INACTIVATED POLIOVIRUS VACCINE
     Indication: IMMUNISATION
     Route: 058
     Dates: start: 20190809

REACTIONS (3)
  - Cerebrovascular accident [Recovering/Resolving]
  - Noninfective gingivitis [Unknown]
  - Haematochezia [Unknown]

NARRATIVE: CASE EVENT DATE: 2019
